FAERS Safety Report 8392130-7 (Version None)
Quarter: 2012Q2

REPORT INFORMATION
  Report Type: 
  Country: None (occurrence: None)
  Receive Date: 20120524
  Receipt Date: 20120524
  Transmission Date: 20120825
  Serious: Yes (Other)
  Sender: FDA-Public Use
  Company Number: None

PATIENT
  Age: 45 Year
  Sex: Female
  Weight: 76.6579 kg

DRUGS (1)
  1. ESCITALOPRAM [Suspect]
     Indication: DEPRESSION
     Dosage: 1 TAB BID PO
     Route: 048
     Dates: start: 20120508, end: 20120520

REACTIONS (12)
  - MYALGIA [None]
  - HEADACHE [None]
  - LIBIDO DECREASED [None]
  - SOCIAL AVOIDANT BEHAVIOUR [None]
  - PRODUCT SUBSTITUTION ISSUE [None]
  - DEPRESSION [None]
  - DYSPEPSIA [None]
  - PRODUCT QUALITY ISSUE [None]
  - DRUG INEFFECTIVE [None]
  - CRYING [None]
  - HOT FLUSH [None]
  - FLATULENCE [None]
